FAERS Safety Report 7864524-7 (Version None)
Quarter: 2011Q4

REPORT INFORMATION
  Report Type: 
  Country: None (occurrence: None)
  Receive Date: 20111028
  Receipt Date: 20111024
  Transmission Date: 20120403
  Serious: No
  Sender: FDA-Public Use
  Company Number: US-PFIZER INC-2011260461

PATIENT
  Sex: Female

DRUGS (2)
  1. WELLBUTRIN [Concomitant]
     Dosage: UNK
     Dates: start: 20110101
  2. LYRICA [Suspect]
     Dosage: UNK
     Route: 048
     Dates: start: 20111020

REACTIONS (2)
  - ENERGY INCREASED [None]
  - FEELING ABNORMAL [None]
